FAERS Safety Report 4531443-3 (Version None)
Quarter: 2004Q4

REPORT INFORMATION
  Report Type: 
  Country: None (occurrence: None)
  Receive Date: 20041217
  Receipt Date: 20040902
  Transmission Date: 20050328
  Serious: Yes (Hospitalization, Other)
  Sender: FDA-Public Use
  Company Number: 2004S1002744

PATIENT
  Age: 46 Year
  Sex: 0
  Weight: 79.3795 kg

DRUGS (1)
  1. LORAZEPAM [Suspect]
     Indication: DETOXIFICATION
     Dosage: 2 MG Q 2 HRS PRN, ORAL
     Route: 048
     Dates: start: 20040827

REACTIONS (3)
  - DELIRIUM [None]
  - HALLUCINATION [None]
  - TREMOR [None]
